FAERS Safety Report 5208457-3 (Version None)
Quarter: 2006Q4

REPORT INFORMATION
  Report Type: 
  Country: None (occurrence: None)
  Receive Date: 20061027
  Receipt Date: 20051115
  Transmission Date: 20070319
  Serious: Yes (Other)
  Sender: FDA-Public Use
  Company Number: HQWYE956925MAY05

PATIENT
  Age: 55 Year
  Sex: Female
  Weight: 68.1 kg

DRUGS (5)
  1. PREMARIN [Suspect]
     Indication: HORMONE REPLACEMENT THERAPY
     Dosage: ORAL
     Route: 048
     Dates: start: 19950101, end: 20020101
  2. PREMARIN [Suspect]
     Indication: MENOPAUSAL SYMPTOMS
     Dosage: ORAL
     Route: 048
     Dates: start: 19950101, end: 20020101
  3. MEDROXYPROGESTERONE [Suspect]
  4. PROVERA [Suspect]
  5. MAXIDEX (BENZALKONIUM CHLORIDE/DEXAMETHASONE/PHENYLMERCURIC NITRATE) [Concomitant]

REACTIONS (1)
  - BREAST CANCER [None]
